FAERS Safety Report 4672547-4 (Version None)
Quarter: 2005Q2

REPORT INFORMATION
  Report Type: 
  Country: None (occurrence: None)
  Receive Date: 20050524
  Receipt Date: 20050509
  Transmission Date: 20051028
  Serious: Yes (Death, Hospitalization)
  Sender: FDA-Public Use
  Company Number: SEWYE654910MAY05

PATIENT
  Sex: Female
  Weight: 57 kg

DRUGS (4)
  1. ENBREL [Suspect]
     Indication: RHEUMATOID ARTHRITIS
     Dosage: THE DOSE REGIMEN WAS NOT SPECIFIED
     Dates: end: 20041226
  2. FUROSEMIDE [Concomitant]
     Route: 065
  3. KETOGAN [Concomitant]
     Dosage: PER NEED
     Route: 065
  4. POTASSIUM CHLORIDE [Concomitant]
     Route: 065

REACTIONS (7)
  - ENDOCARDITIS [None]
  - HYPOTENSION [None]
  - MULTI-ORGAN FAILURE [None]
  - PANCREATITIS HAEMORRHAGIC [None]
  - PNEUMONIA [None]
  - RENAL FAILURE [None]
  - SEPTIC SHOCK [None]
